FAERS Safety Report 23516780 (Version 1)
Quarter: 2024Q1

REPORT INFORMATION
  Report Type: Spontaneous
  Country: JP (occurrence: JP)
  Receive Date: 20240213
  Receipt Date: 20240213
  Transmission Date: 20240410
  Serious: Yes (Death, Disabling, Other)
  Sender: FDA-Public Use
  Company Number: JP-aspen-SDZ2023JP018604AA

PATIENT
  Age: 47 Year
  Sex: Male

DRUGS (3)
  1. NELARABINE [Suspect]
     Active Substance: NELARABINE
     Indication: Non-Hodgkin^s lymphoma
     Dosage: 1500 MG/M2, 1 CYCLE, ON DAYS 1
     Route: 042
  2. NELARABINE [Suspect]
     Active Substance: NELARABINE
     Dosage: 1500 MG/M2, 1 CYCLE, ON DAYS 3
     Route: 065
  3. NELARABINE [Suspect]
     Active Substance: NELARABINE
     Dosage: 1500 MG/M2, 1 CYCLE, ON DAYS 5
     Route: 065

REACTIONS (2)
  - Mucormycosis [Fatal]
  - Myelopathy [Unknown]
